FAERS Safety Report 9269121 (Version 2)
Quarter: 2015Q3

REPORT INFORMATION
  Report Type: Report from Study
  Country: DE (occurrence: DE)
  Receive Date: 20130503
  Receipt Date: 20150909
  Transmission Date: 20151125
  Serious: Yes (Hospitalization)
  Sender: FDA-Public Use
  Company Number: DE-SHIRE-ALL1-2013-02658

PATIENT
  Age: 29 Year
  Sex: Male
  Weight: 81 kg

DRUGS (12)
  1. RAMIPRIL. [Concomitant]
     Active Substance: RAMIPRIL
     Indication: CARDIOVASCULAR DISORDER
     Dosage: 10 MG, 1X/DAY:QD
     Route: 048
     Dates: start: 20111107
  2. METHAMIZOL [Concomitant]
     Indication: PAIN
     Dosage: 1 G, 3X/DAY:TID
     Route: 048
     Dates: start: 20111107
  3. IDURSULFASE [Suspect]
     Active Substance: IDURSULFASE
     Dosage: 34.4 MG, 1X/DAY:QD
     Route: 041
     Dates: start: 20040113
  4. ESOMEPRAZOL                        /01479301/ [Concomitant]
     Active Substance: ESOMEPRAZOLE
     Indication: GASTROINTESTINAL DISORDER
     Dosage: 20 MG, 1X/DAY:QD
     Route: 048
     Dates: start: 20111107
  5. OMEPRAZOLE. [Concomitant]
     Active Substance: OMEPRAZOLE
     Indication: GASTROINTESTINAL DISORDER
     Dosage: 40 MG, 1X/DAY:QD
     Route: 048
     Dates: start: 20111107
  6. IDURSULFASE [Suspect]
     Active Substance: IDURSULFASE
     Dosage: 48 MG, 1X/DAY:QD
     Route: 041
     Dates: start: 20090421
  7. ESOMEPRAZOL                        /01479301/ [Concomitant]
     Active Substance: ESOMEPRAZOLE
     Dosage: 40 UNK, 2X/DAY:BID
     Route: 048
     Dates: end: 2009
  8. OMEPRAZOLE. [Concomitant]
     Active Substance: OMEPRAZOLE
     Dosage: 40 MG, 1X/DAY:QD
     Route: 048
     Dates: end: 2011
  9. IDURSULFASE [Suspect]
     Active Substance: IDURSULFASE
     Indication: MUCOPOLYSACCHARIDOSIS II
     Dosage: 48.6 MG, 1X/WEEK
     Route: 041
     Dates: start: 20110808
  10. OMEPRAZOLE. [Concomitant]
     Active Substance: OMEPRAZOLE
     Dosage: 40 MG, 1X/DAY:QD
     Route: 048
     Dates: end: 2009
  11. METHAMIZOL [Concomitant]
     Dosage: 500 MG, 2X/DAY:BID
     Route: 048
     Dates: start: 20110114, end: 20111107
  12. DILTIAZEM HYDROCHLORIDE. [Concomitant]
     Active Substance: DILTIAZEM HYDROCHLORIDE
     Indication: CARDIOVASCULAR DISORDER
     Dosage: 60 MG, 3X/DAY:TID
     Route: 048
     Dates: start: 201108

REACTIONS (1)
  - Carpal tunnel syndrome [Recovered/Resolved]

NARRATIVE: CASE EVENT DATE: 20120110
